FAERS Safety Report 8584825-7 (Version None)
Quarter: 2012Q2

REPORT INFORMATION
  Report Type: 
  Country: None (occurrence: None)
  Receive Date: 20120423
  Receipt Date: 20100112
  Transmission Date: 20120825
  Serious: Yes (Hospitalization, Other)
  Sender: FDA-Public Use
  Company Number: PHEH2009US14614

PATIENT
  Age: 37 Year
  Sex: Female
  Weight: 68.9 kg

DRUGS (7)
  1. FOLIC ACID [Concomitant]
  2. POTASSIUM CITRATE [Concomitant]
  3. EXJADE [Suspect]
     Indication: IRON OVERLOAD
     Dosage: 1000 MG, ORAL
     Route: 048
     Dates: start: 20060110
  4. TYLENOL W/CODEINE NO. 4 (CODEINE PHOSPHATE, PARACETAMOL) [Concomitant]
  5. MOTRIN [Concomitant]
  6. STADOL [Concomitant]
  7. POTASSIUM CHLORIDE [Concomitant]

REACTIONS (1)
  - SICKLE CELL ANAEMIA WITH CRISIS [None]
